FAERS Safety Report 8282939-2 (Version None)
Quarter: 2012Q2

REPORT INFORMATION
  Report Type: 
  Country: None (occurrence: None)
  Receive Date: 20120410
  Receipt Date: 20120326
  Transmission Date: 20120825
  Serious: Yes (Other)
  Sender: FDA-Public Use
  Company Number: 2012000004

PATIENT
  Age: 38 Year
  Sex: Female

DRUGS (1)
  1. ACEON [Suspect]
     Indication: HYPERTENSION
     Dosage: , ORAL
     Route: 048
     Dates: start: 20110101, end: 20111201

REACTIONS (7)
  - DISORIENTATION [None]
  - THOUGHT INSERTION [None]
  - SLEEP DISORDER [None]
  - DELUSION OF REFERENCE [None]
  - BRADYPHRENIA [None]
  - PSYCHOTIC DISORDER [None]
  - PERSONALITY CHANGE [None]
